FAERS Safety Report 9496825 (Version 2)
Quarter: 2014Q2

REPORT INFORMATION
  Report Type: Spontaneous
  Country: FR (occurrence: None)
  Receive Date: 20130830
  Receipt Date: 20140528
  Transmission Date: 20141212
  Serious: Yes (Hospitalization)
  Sender: FDA-Public Use
  Company Number: 7232405

PATIENT
  Age: 87 Year
  Sex: Female

DRUGS (9)
  1. LEVOTHYROX [Suspect]
     Indication: PRODUCT USED FOR UNKNOWN INDICATION
     Dosage: THERAPY DATES: UNSPECIFIED
     Route: 048
  2. PREVISCAN [Suspect]
     Indication: PRODUCT USED FOR UNKNOWN INDICATION
     Dosage: 10 MG (10 MG, 1 IN 1 D), ORAL
     Route: 048
     Dates: start: 201210
  3. CORDARONE [Suspect]
     Indication: PRODUCT USED FOR UNKNOWN INDICATION
     Dosage: 1 DF (1 DF, 1 IN 1 D), ORAL
     Route: 048
     Dates: start: 201210, end: 20130731
  4. TAHOR [Suspect]
     Indication: PRODUCT USED FOR UNKNOWN INDICATION
     Dosage: 10 MG (10 MG, 1 IN 1 D), ORAL
     Route: 048
  5. RAMIPRIL (RAMIPRIL) (RAMIPRIL) [Suspect]
     Indication: PRODUCT USED FOR UNKNOWN INDICATION
     Dosage: 2.5 MG (2.5 MG, 1 IN 1 D), ORAL
     Route: 048
  6. LASILIX [Suspect]
     Indication: PRODUCT USED FOR UNKNOWN INDICATION
     Dosage: 60 MG (60 MG, 1 IN 1 D), ORAL
     Route: 048
  7. AMLOR [Suspect]
     Indication: PRODUCT USED FOR UNKNOWN INDICATION
     Dosage: 5 MG (5 MG, 1 IN 1 D), ORAL
     Route: 048
  8. OGAST [Suspect]
     Indication: PRODUCT USED FOR UNKNOWN INDICATION
     Route: 048
  9. UVEDOSE (COLECALCIFEROL) (COLECALCIFEROL) [Concomitant]

REACTIONS (6)
  - Lung disorder [None]
  - Respiratory distress [None]
  - Inflammation [None]
  - Oxygen saturation decreased [None]
  - Rales [None]
  - Infection [None]
